FAERS Safety Report 11603925 (Version 1)
Quarter: 2015Q4

REPORT INFORMATION
  Report Type: Report from Study
  Country: US (occurrence: US)
  Receive Date: 20151007
  Receipt Date: 20151007
  Transmission Date: 20160304
  Serious: Yes (Other)
  Sender: FDA-Public Use
  Company Number: US-AMGEN-USASP2015101572

PATIENT
  Sex: Female

DRUGS (1)
  1. ENBREL [Suspect]
     Active Substance: ETANERCEPT
     Indication: RHEUMATOID ARTHRITIS
     Dosage: 50 MG, QWK
     Route: 065

REACTIONS (7)
  - Activities of daily living impaired [Unknown]
  - Muscle spasms [Unknown]
  - Delirium [Unknown]
  - Pulse absent [Unknown]
  - Condition aggravated [Unknown]
  - Loss of consciousness [Unknown]
  - Mobility decreased [Unknown]
